FAERS Safety Report 5990082-8 (Version None)
Quarter: 2008Q4

REPORT INFORMATION
  Report Type: 
  Country: None (occurrence: None)
  Receive Date: 20081211
  Receipt Date: 20081208
  Transmission Date: 20090506
  Serious: Yes (Hospitalization)
  Sender: FDA-Public Use
  Company Number: AU-BRISTOL-MYERS SQUIBB COMPANY-14435374

PATIENT
  Age: 33 Year
  Sex: Female

DRUGS (2)
  1. ABILIFY [Suspect]
     Indication: SCHIZOPHRENIA
     Route: 048
     Dates: start: 20061101
  2. LUVOX [Suspect]
     Route: 048
     Dates: start: 20061115

REACTIONS (7)
  - ASTHENIA [None]
  - EXPRESSIVE LANGUAGE DISORDER [None]
  - GAIT DISTURBANCE [None]
  - MENTAL STATUS CHANGES [None]
  - PARAESTHESIA [None]
  - URINARY INCONTINENCE [None]
  - VISION BLURRED [None]
